FAERS Safety Report 9845915 (Version 1)
Quarter: 2014Q1

REPORT INFORMATION
  Report Type: Spontaneous
  Country: US (occurrence: US)
  Receive Date: 20140127
  Receipt Date: 20140127
  Transmission Date: 20141002
  Serious: Yes (Other)
  Sender: FDA-Public Use
  Company Number: US-TEVA-458218USA

PATIENT
  Age: 34 Year
  Sex: Female
  Weight: 86.26 kg

DRUGS (4)
  1. PARAGARD 380A [Suspect]
     Indication: CONTRACEPTION
     Route: 015
     Dates: start: 20131223, end: 20140121
  2. PARAGARD 380A [Suspect]
     Route: 015
     Dates: start: 20140121
  3. LEXAPRO [Concomitant]
     Indication: PRODUCT USED FOR UNKNOWN INDICATION
     Dosage: 10 MILLIGRAM DAILY;
     Route: 048
  4. MELATONIN [Concomitant]
     Indication: PHYTOTHERAPY

REACTIONS (1)
  - Device dislocation [Recovered/Resolved]
